FAERS Safety Report 9648445 (Version 1)
Quarter: 2013Q4

REPORT INFORMATION
  Report Type: Spontaneous
  Country: US (occurrence: None)
  Receive Date: 20131024
  Receipt Date: 20131024
  Transmission Date: 20140711
  Serious: Yes (Disabling, Other)
  Sender: FDA-Public Use
  Company Number: 1310-1324

PATIENT
  Age: 61 Year
  Sex: Male
  Weight: 107.05 kg

DRUGS (10)
  1. EYLEA (AFLIBERCEPT) (INJECTION) (AFLIBERCEPT) [Suspect]
     Indication: AGE-RELATED MACULAR DEGENERATION
     Dosage: INTRAVITREAL
     Dates: start: 20130612
  2. ZANTAC (RANITIDINE HYDROCHLORIDE) [Concomitant]
  3. ENALAPRIL [Concomitant]
  4. NIFEDIPINE (NIFEDIPINE) [Concomitant]
  5. PROPRANOLOL (PROPRANOLOL) [Concomitant]
  6. SIMVASTATIN (SIMVASTATIN) [Concomitant]
  7. MELOXICAM (MELOXICAM) [Concomitant]
  8. LANTUS INSULIN [Concomitant]
  9. ASPIRIN LOW DOSE (ACETYLSALICYLIC ACID) [Concomitant]
  10. POTASSIUIM (POTASSIUM) [Concomitant]

REACTIONS (6)
  - Eye infection bacterial [None]
  - Vitrectomy [None]
  - Eye pain [None]
  - Migraine [None]
  - Headache [None]
  - Blindness unilateral [None]
